FAERS Safety Report 5695258-5 (Version None)
Quarter: 2008Q2

REPORT INFORMATION
  Report Type: 
  Country: None (occurrence: None)
  Receive Date: 20080404
  Receipt Date: 20080402
  Transmission Date: 20081010
  Serious: Yes (Hospitalization)
  Sender: FDA-Public Use
  Company Number: US-BOEHRINGER INGELHEIM GMBH, GERMANY-2008-BP-05099RO

PATIENT
  Sex: Female

DRUGS (16)
  1. PREDNISONE [Suspect]
     Indication: DIFFUSE LARGE B-CELL LYMPHOMA
     Route: 048
     Dates: start: 20070724
  2. CYCLOPHOSPHAMIDE [Suspect]
     Indication: DIFFUSE LARGE B-CELL LYMPHOMA
     Route: 042
     Dates: start: 20070724
  3. ENZASTAURIN [Suspect]
     Indication: DIFFUSE LARGE B-CELL LYMPHOMA
     Route: 048
     Dates: start: 20070725, end: 20070725
  4. ENZASTAURIN [Suspect]
     Route: 048
     Dates: start: 20070726
  5. RITUXIMAB [Suspect]
     Indication: DIFFUSE LARGE B-CELL LYMPHOMA
     Route: 042
     Dates: start: 20070724
  6. DOXORUBICIN HCL [Suspect]
     Indication: DIFFUSE LARGE B-CELL LYMPHOMA
     Route: 042
     Dates: start: 20070724
  7. VINCRISTINE [Suspect]
     Indication: DIFFUSE LARGE B-CELL LYMPHOMA
     Route: 042
     Dates: start: 20070724
  8. ATACAND [Concomitant]
  9. DARVOCET [Concomitant]
  10. SYNTHROID [Concomitant]
  11. ADVIL [Concomitant]
     Dates: start: 20070601
  12. TYLENOL (CAPLET) [Concomitant]
  13. COMPAZINE [Concomitant]
     Dates: start: 20070624
  14. MIRALAX [Concomitant]
     Dates: start: 20070730
  15. SENOKOT [Concomitant]
     Dates: start: 20070801, end: 20070802
  16. MULTI-VITAMIN [Concomitant]

REACTIONS (2)
  - FEBRILE NEUTROPENIA [None]
  - OESOPHAGEAL CANDIDIASIS [None]
